FAERS Safety Report 4340710-8 (Version None)
Quarter: 2004Q2

REPORT INFORMATION
  Report Type: 
  Country: None (occurrence: None)
  Receive Date: 20040413
  Receipt Date: 20040406
  Transmission Date: 20050107
  Serious: Yes (Hospitalization)
  Sender: FDA-Public Use
  Company Number: 2004UW00594

PATIENT
  Age: 29 Year
  Sex: Male
  Weight: 111.1313 kg

DRUGS (4)
  1. ZOMIG [Suspect]
     Indication: MIGRAINE
     Dosage: 5 MG QD PO
     Route: 048
     Dates: start: 20010101
  2. HYOSCYAMINE [Suspect]
     Indication: INFLAMMATORY BOWEL DISEASE
     Dosage: 0.125 MG
  3. RHINOCORT [Concomitant]
  4. PLATINOL [Concomitant]

REACTIONS (3)
  - DIZZINESS [None]
  - DRUG INTERACTION [None]
  - SYNCOPE [None]
